FAERS Safety Report 11575107 (Version 1)
Quarter: 2015Q3

REPORT INFORMATION
  Report Type: Spontaneous
  Country: US (occurrence: None)
  Receive Date: 20150929
  Receipt Date: 20150929
  Transmission Date: 20151125
  Serious: Yes (Hospitalization)
  Sender: FDA-Public Use
  Company Number: None

PATIENT
  Age: 3 Year
  Sex: Female
  Weight: 18 kg

DRUGS (5)
  1. VINCRISTINE SULFATE. [Suspect]
     Active Substance: VINCRISTINE SULFATE
     Dates: end: 20150902
  2. CYTARABINE. [Suspect]
     Active Substance: CYTARABINE
     Dates: end: 20150901
  3. METHOTREXATE [Suspect]
     Active Substance: METHOTREXATE
     Dates: end: 20150909
  4. ONCASPAR [Suspect]
     Active Substance: PEGASPARGASE
     Dates: end: 20150905
  5. DEXAMETHASONE. [Suspect]
     Active Substance: DEXAMETHASONE
     Dates: end: 20150928

REACTIONS (16)
  - Irritability [None]
  - Back pain [None]
  - Stomatitis [None]
  - Bacterial infection [None]
  - Eye movement disorder [None]
  - Chapped lips [None]
  - Lip haemorrhage [None]
  - Erythema [None]
  - Aeromonas test positive [None]
  - Pain [None]
  - Mucormycosis [None]
  - Balance disorder [None]
  - Unresponsive to stimuli [None]
  - Body temperature increased [None]
  - Pain in extremity [None]
  - Wound necrosis [None]

NARRATIVE: CASE EVENT DATE: 20150906
